FAERS Safety Report 12170914 (Version 1)
Quarter: 2016Q1

REPORT INFORMATION
  Report Type: Spontaneous
  Country: US (occurrence: US)
  Receive Date: 20160311
  Receipt Date: 20160311
  Transmission Date: 20160526
  Serious: No
  Sender: FDA-Public Use
  Company Number: US-ACTAVIS-2015-00084

PATIENT
  Age: 4 Year
  Sex: Male

DRUGS (5)
  1. MELATONIN [Suspect]
     Active Substance: MELATONIN
     Indication: ACQUIRED EPILEPTIC APHASIA
     Dosage: UNK, UNKNOWN
     Route: 065
  2. RANITIDINE [Suspect]
     Active Substance: RANITIDINE\RANITIDINE HYDROCHLORIDE
     Indication: ACQUIRED EPILEPTIC APHASIA
     Dosage: UNK, UNKNOWN
     Route: 065
     Dates: start: 201406
  3. CORTICOSTEROIDS [Suspect]
     Active Substance: CORTICOSTEROID NOS
     Indication: ACQUIRED EPILEPTIC APHASIA
     Dosage: UNK, 2/WEEK
     Route: 065
     Dates: start: 201406
  4. KEPPRA [Suspect]
     Active Substance: LEVETIRACETAM
     Indication: ACQUIRED EPILEPTIC APHASIA
     Dosage: UNK, UNKNOWN
     Route: 065
     Dates: start: 201406
  5. PYRIDOXINE HYDROCHLORIDE (WATSON LABORATORIES) [Suspect]
     Active Substance: PYRIDOXINE HYDROCHLORIDE
     Indication: ACQUIRED EPILEPTIC APHASIA
     Dosage: UNK, UNKNOWN
     Route: 065

REACTIONS (4)
  - Emotional disorder [Unknown]
  - Abnormal behaviour [Unknown]
  - Psychomotor hyperactivity [Unknown]
  - Tic [Unknown]
